FAERS Safety Report 16403009 (Version 2)
Quarter: 2019Q2

REPORT INFORMATION
  Report Type: Spontaneous
  Country: US (occurrence: US)
  Receive Date: 20190607
  Receipt Date: 20190619
  Transmission Date: 20190711
  Serious: Yes (Other)
  Sender: FDA-Public Use
  Company Number: US-ASTRAZENECA-2019SE10229

PATIENT

DRUGS (20)
  1. WARFARIN SODIUM. [Concomitant]
     Active Substance: WARFARIN SODIUM
  2. CYCLOBENZAPRINE. [Concomitant]
     Active Substance: CYCLOBENZAPRINE
  3. PROAIR HFA [Concomitant]
     Active Substance: ALBUTEROL SULFATE
  4. NOVOLIN [Concomitant]
     Active Substance: INSULIN HUMAN
  5. LACTULOSE. [Concomitant]
     Active Substance: LACTULOSE
  6. ATORVASTATIN [Concomitant]
     Active Substance: ATORVASTATIN
  7. CLOTRIMAZOLE. [Concomitant]
     Active Substance: CLOTRIMAZOLE
  8. METOPROLOL SUCCINATE. [Concomitant]
     Active Substance: METOPROLOL SUCCINATE
  9. IBUPROFEN. [Concomitant]
     Active Substance: IBUPROFEN
  10. LANOXIN [Concomitant]
     Active Substance: DIGOXIN
  11. DOCUSATE SODIUM. [Concomitant]
     Active Substance: DOCUSATE SODIUM
  12. SULFAMETHOXAZOLE [Concomitant]
     Active Substance: SULFAMETHOXAZOLE
  13. ALDACTONE [Concomitant]
     Active Substance: SPIRONOLACTONE
  14. FUROSEMIDE. [Concomitant]
     Active Substance: FUROSEMIDE
  15. LAMISIL [Concomitant]
     Active Substance: TERBINAFINE HYDROCHLORIDE
  16. LISINOPRIL. [Concomitant]
     Active Substance: LISINOPRIL
  17. HELIDAC [Concomitant]
     Active Substance: BISMUTH SUBSALICYLATE\METRONIDAZOLE\TETRACYCLINE HYDROCHLORIDE
  18. NEXIUM [Suspect]
     Active Substance: ESOMEPRAZOLE MAGNESIUM
     Route: 048
     Dates: start: 20080729
  19. FLUTICASONE. [Concomitant]
     Active Substance: FLUTICASONE
  20. TETRACYCLINE [Concomitant]
     Active Substance: TETRACYCLINE

REACTIONS (4)
  - Chronic kidney disease [Unknown]
  - Renal failure [Unknown]
  - End stage renal disease [Unknown]
  - Rebound acid hypersecretion [Unknown]
